FAERS Safety Report 9033509 (Version 1)
Quarter: 2013Q1

REPORT INFORMATION
  Report Type: Report from Study
  Country: SG (occurrence: SG)
  Receive Date: 20130128
  Receipt Date: 20130128
  Transmission Date: 20140127
  Serious: Yes (Hospitalization)
  Sender: FDA-Public Use
  Company Number: SG-BAYER-2013-008594

PATIENT
  Sex: 0

DRUGS (5)
  1. ASPIRIN [Suspect]
  2. PREDNISOLONE [Interacting]
  3. ERYTHROMYCIN [Suspect]
  4. OMEPRAZOLE [Concomitant]
  5. SODIUM BICARBONATE [Concomitant]

REACTIONS (4)
  - Duodenal ulcer [None]
  - Dyspnoea [None]
  - Anaemia [None]
  - Drug interaction [None]
